FAERS Safety Report 7144977-2 (Version None)
Quarter: 2010Q4

REPORT INFORMATION
  Report Type: 
  Country: None (occurrence: None)
  Receive Date: 20101208
  Receipt Date: 20101129
  Transmission Date: 20110411
  Serious: Yes (Other)
  Sender: FDA-Public Use
  Company Number: US-JNJFOC-20100706039

PATIENT
  Sex: Female

DRUGS (2)
  1. LEVAQUIN [Suspect]
     Indication: SINUSITIS
     Route: 048
  2. LEVAQUIN [Suspect]
     Indication: OROPHARYNGEAL PAIN
     Route: 048

REACTIONS (7)
  - ARTHRALGIA [None]
  - MYALGIA [None]
  - PANIC ATTACK [None]
  - TARSAL TUNNEL SYNDROME [None]
  - TENDON DISORDER [None]
  - TENDON RUPTURE [None]
  - TENOSYNOVITIS [None]
